FAERS Safety Report 5521607-4 (Version None)
Quarter: 2007Q4

REPORT INFORMATION
  Report Type: 
  Country: None (occurrence: None)
  Receive Date: 20071120
  Receipt Date: 20071114
  Transmission Date: 20080405
  Serious: Yes (Other)
  Sender: FDA-Public Use
  Company Number: US-BRISTOL-MYERS SQUIBB COMPANY-13984190

PATIENT
  Age: 10 Year
  Sex: Male

DRUGS (3)
  1. FLUDROCORTISONE ACETATE [Suspect]
     Indication: ORTHOSTATIC HYPOTENSION
  2. METOPROLOL TARTRATE [Suspect]
     Indication: ORTHOSTATIC HYPOTENSION
  3. MIDODRINE HYDROCHLORIDE [Suspect]
     Indication: ORTHOSTATIC HYPOTENSION

REACTIONS (5)
  - HEADACHE [None]
  - HYPERTENSION [None]
  - NAUSEA [None]
  - PRURITUS [None]
  - RASH [None]
